FAERS Safety Report 20169462 (Version 1)
Quarter: 2021Q4

REPORT INFORMATION
  Report Type: Spontaneous
  Country: US (occurrence: US)
  Receive Date: 20211210
  Receipt Date: 20211210
  Transmission Date: 20220303
  Serious: Yes (Death, Other)
  Sender: FDA-Public Use
  Company Number: US-GLAXOSMITHKLINE-US2021GSK253094

PATIENT
  Sex: Male

DRUGS (6)
  1. ZANTAC [Suspect]
     Active Substance: RANITIDINE HYDROCHLORIDE
     Indication: Diverticulitis
     Dosage: 150 MG, QD
     Route: 065
     Dates: start: 200601, end: 201501
  2. ZANTAC [Suspect]
     Active Substance: RANITIDINE HYDROCHLORIDE
     Indication: Diverticulitis
     Dosage: 150 MG, QD
     Route: 065
     Dates: start: 200601, end: 201501
  3. ZANTAC [Suspect]
     Active Substance: RANITIDINE HYDROCHLORIDE
     Indication: Diverticulitis
     Dosage: 150 MG, QD
     Route: 065
     Dates: start: 200601, end: 201501
  4. RANITIDINE [Suspect]
     Active Substance: RANITIDINE
     Indication: Diverticulitis
     Dosage: 150 MG, QD
     Route: 065
     Dates: start: 200601, end: 201501
  5. RANITIDINE [Suspect]
     Active Substance: RANITIDINE
     Indication: Diverticulitis
     Dosage: 150 MG, QD
     Route: 065
     Dates: start: 200601, end: 201501
  6. RANITIDINE [Suspect]
     Active Substance: RANITIDINE
     Indication: Diverticulitis
     Dosage: 150 MG, QD
     Route: 065
     Dates: start: 200601, end: 201501

REACTIONS (1)
  - Prostate cancer [Fatal]
